FAERS Safety Report 5525697-4 (Version None)
Quarter: 2007Q4

REPORT INFORMATION
  Report Type: 
  Country: None (occurrence: None)
  Receive Date: 20071120
  Receipt Date: 20071108
  Transmission Date: 20080405
  Serious: Yes (Hospitalization, Other)
  Sender: FDA-Public Use
  Company Number: 2007BI023839

PATIENT
  Sex: Female

DRUGS (1)
  1. AVONEX [Suspect]
     Indication: DRUG USE FOR UNKNOWN INDICATION
     Dosage: ;IM
     Route: 030
     Dates: start: 20051108

REACTIONS (3)
  - EYEBALL RUPTURE [None]
  - FALL [None]
  - MYOCARDIAL INFARCTION [None]
